FAERS Safety Report 7018424-5 (Version None)
Quarter: 2010Q3

REPORT INFORMATION
  Report Type: 
  Country: None (occurrence: None)
  Receive Date: 20100924
  Receipt Date: 20100913
  Transmission Date: 20110219
  Serious: Yes (Hospitalization, Other)
  Sender: FDA-Public Use
  Company Number: 20100442

PATIENT
  Age: 39 Year
  Sex: Female

DRUGS (4)
  1. VENOFER [Suspect]
     Indication: IRON DEFICIENCY ANAEMIA
     Dosage: 500 MG IN 250 ML/ 30 MINUTES INTRAVENOUS DRIP
     Route: 041
     Dates: start: 20090925, end: 20090925
  2. FERINJECT (CARBOXYMALTOSE) [Concomitant]
  3. MALTOFER [Concomitant]
  4. VITARUBIN (CYANOCOBALAMIN) [Concomitant]

REACTIONS (9)
  - ANAPHYLACTIC SHOCK [None]
  - EAR DISCOMFORT [None]
  - HEPATOMEGALY [None]
  - INCORRECT DRUG ADMINISTRATION RATE [None]
  - LIVER TENDERNESS [None]
  - PARAESTHESIA [None]
  - POLYCYTHAEMIA [None]
  - THROAT IRRITATION [None]
  - VIRAL UPPER RESPIRATORY TRACT INFECTION [None]
